FAERS Safety Report 8882765 (Version 1)
Quarter: 2012Q4

REPORT INFORMATION
  Report Type: 
  Country: CZ (occurrence: CZ)
  Receive Date: 20121103
  Receipt Date: 20121103
  Transmission Date: 20130627
  Serious: Yes (Death, Hospitalization)
  Sender: FDA-Public Use
  Company Number: CZ-BRISTOL-MYERS SQUIBB COMPANY-17095886

PATIENT

DRUGS (1)
  1. CEENU [Suspect]
     Indication: NEOPLASM

REACTIONS (1)
  - Bone marrow failure [Fatal]
